FAERS Safety Report 8574394-X (Version None)
Quarter: 2012Q3

REPORT INFORMATION
  Report Type: 
  Country: None (occurrence: None)
  Receive Date: 20120806
  Receipt Date: 20120724
  Transmission Date: 20120928
  Serious: No
  Sender: FDA-Public Use
  Company Number: US-009507513-1207USA011334

PATIENT

DRUGS (3)
  1. INTERFERON ALFA-2A [Suspect]
     Indication: HEPATITIS C
     Dosage: 180 MICROGRAM, QW
     Dates: start: 20120420
  2. RIBAVIRIN [Suspect]
     Indication: HEPATITIS C
     Dosage: 1200 MG, QD
     Dates: start: 20120420
  3. BOCEPREVIR [Suspect]
     Dosage: UNK
     Dates: start: 20120519

REACTIONS (2)
  - HEADACHE [None]
  - WHITE BLOOD CELL COUNT DECREASED [None]
